FAERS Safety Report 20249400 (Version 1)
Quarter: 2021Q4

REPORT INFORMATION
  Report Type: Spontaneous
  Country: US (occurrence: None)
  Receive Date: 20211229
  Receipt Date: 20211229
  Transmission Date: 20220304
  Serious: No
  Sender: FDA-Public Use
  Company Number: None

PATIENT
  Age: 58 Year
  Sex: Male
  Weight: 90.9 kg

DRUGS (2)
  1. REGEN-COV [Suspect]
     Active Substance: CASIRIVIMAB\IMDEVIMAB
     Indication: Monoclonal gammopathy
     Dosage: OTHER FREQUENCY : ONCE;?
     Route: 058
     Dates: start: 20211228, end: 20211228
  2. REGEN-COV [Concomitant]
     Active Substance: CASIRIVIMAB\IMDEVIMAB
     Dates: start: 20211228, end: 20211228

REACTIONS (1)
  - Wrong product administered [None]

NARRATIVE: CASE EVENT DATE: 20211228
